FAERS Safety Report 18229693 (Version 1)
Quarter: 2020Q3

REPORT INFORMATION
  Report Type: Spontaneous
  Country: CN (occurrence: CN)
  Receive Date: 20200903
  Receipt Date: 20200903
  Transmission Date: 20201103
  Serious: Yes (Hospitalization)
  Sender: FDA-Public Use
  Company Number: CN-BAXTER-2020BAX017938

PATIENT
  Age: 55 Year
  Sex: Male
  Weight: 75 kg

DRUGS (10)
  1. ENDOXAN [Suspect]
     Active Substance: CYCLOPHOSPHAMIDE
     Dosage: DOSE REINTRODUCED,  CYCLOPHOSPHAMIDE + NORMAL SALINE (SODIUM CHLORIDE)
     Route: 041
     Dates: start: 202008
  2. TUO LI SHI NING [Suspect]
     Active Substance: TROPISETRON HYDROCHLORIDE
     Indication: ANTIEMETIC SUPPORTIVE CARE
     Dosage: TROPISETRON + SODIUM CHLORIDE
     Route: 041
     Dates: start: 20200817, end: 20200818
  3. TUO LI SHI NING [Suspect]
     Active Substance: TROPISETRON HYDROCHLORIDE
     Dosage: DOSE REINTRODUCED, TROPISETRON + SODIUM CHLORIDE
     Route: 041
     Dates: start: 202008
  4. SODIUM BICARBONATE. [Suspect]
     Active Substance: SODIUM BICARBONATE
     Dosage: DOSE REINTRODUCED
     Route: 041
     Dates: start: 202008
  5. SODIUM CHLORIDE. [Suspect]
     Active Substance: SODIUM CHLORIDE
     Dosage: DOSE REINTRODUCED, TROPISETRON + SODIUM CHLORIDE
     Route: 041
     Dates: start: 202008
  6. SODIUM BICARBONATE. [Suspect]
     Active Substance: SODIUM BICARBONATE
     Indication: URINE ALKALINISATION THERAPY
     Route: 041
     Dates: start: 20200817, end: 20200818
  7. ENDOXAN [Suspect]
     Active Substance: CYCLOPHOSPHAMIDE
     Indication: PLASMA CELL MYELOMA
     Dosage: CYCLOPHOSPHAMIDE + NORMAL SALINE(SODIUM CHLORIDE) 250ML
     Route: 041
     Dates: start: 20200817, end: 20200818
  8. SODIUM CHLORIDE. [Suspect]
     Active Substance: SODIUM CHLORIDE
     Dosage: TROPISETRON + SODIUM CHLORIDE
     Route: 041
     Dates: start: 20200817, end: 20200818
  9. SODIUM CHLORIDE. [Suspect]
     Active Substance: SODIUM CHLORIDE
     Indication: MEDICATION DILUTION
     Dosage: NORMAL SALINE (SODIUM CHLORIDE) 250ML + CYCLOPHOSPHAMIDE 1.93G
     Route: 041
     Dates: start: 20200817, end: 20200818
  10. SODIUM CHLORIDE. [Suspect]
     Active Substance: SODIUM CHLORIDE
     Dosage: DOSE REINTRODUCED, NORMAL SALINE (SODIUM CHLORIDE)+ CYCLOPHOSPHAMIDE
     Route: 041
     Dates: start: 202008

REACTIONS (3)
  - Localised oedema [Recovering/Resolving]
  - Rash [Recovering/Resolving]
  - Pruritus [Recovering/Resolving]

NARRATIVE: CASE EVENT DATE: 20200817
